FAERS Safety Report 6893386-X (Version None)
Quarter: 2010Q3

REPORT INFORMATION
  Report Type: 
  Country: None (occurrence: None)
  Receive Date: 20100731
  Receipt Date: 20090824
  Transmission Date: 20110219
  Serious: No
  Sender: FDA-Public Use
  Company Number: US-PFIZER INC-2009233386

PATIENT
  Sex: Female
  Weight: 63.49 kg

DRUGS (12)
  1. LIPITOR [Suspect]
     Indication: BLOOD CHOLESTEROL INCREASED
     Dosage: 20 MG, 1X/DAY
     Route: 048
     Dates: start: 20090604, end: 20090623
  2. HUMALOG [Concomitant]
     Dosage: UNK
  3. LOPERAMIDE HYDROCHLORIDE [Concomitant]
     Dosage: UNK
  4. CYMBALTA [Concomitant]
     Dosage: UNK
  5. REGLAN [Concomitant]
     Dosage: UNK
  6. PRILOSEC [Concomitant]
     Dosage: UNK
  7. PROMETHAZINE [Concomitant]
     Dosage: 25 MG, AS NEEDED
  8. ZOFRAN [Concomitant]
     Dosage: UNK
  9. DYAZIDE [Concomitant]
     Dosage: UNK
  10. ESTRACE [Concomitant]
     Dosage: UNK
  11. CORGARD [Concomitant]
     Dosage: UNK
  12. AMITRIPTYLINE [Concomitant]
     Dosage: UNK

REACTIONS (2)
  - MUSCLE SPASMS [None]
  - RESTLESS LEGS SYNDROME [None]
